FAERS Safety Report 15289121 (Version 1)
Quarter: 2018Q3

REPORT INFORMATION
  Report Type: Spontaneous
  Country: US (occurrence: US)
  Receive Date: 20180817
  Receipt Date: 20180817
  Transmission Date: 20181010
  Serious: No
  Sender: FDA-Public Use
  Company Number: US-SA-2018SA226354

PATIENT
  Sex: Female

DRUGS (1)
  1. AUBAGIO [Suspect]
     Active Substance: TERIFLUNOMIDE
     Dosage: UNK
     Dates: start: 20180720

REACTIONS (12)
  - Ear pain [Unknown]
  - Decreased appetite [Unknown]
  - Diarrhoea [Unknown]
  - Nausea [Unknown]
  - Infection [Unknown]
  - Lymphadenopathy [Unknown]
  - Chest pain [Unknown]
  - Dyspnoea [Unknown]
  - Hypersensitivity [Unknown]
  - Vision blurred [Unknown]
  - Pharyngeal oedema [Unknown]
  - Headache [Unknown]

NARRATIVE: CASE EVENT DATE: 201807
